FAERS Safety Report 6884072-0 (Version None)
Quarter: 2010Q3

REPORT INFORMATION
  Report Type: 
  Country: None (occurrence: None)
  Receive Date: 20100729
  Receipt Date: 20100715
  Transmission Date: 20110219
  Serious: Yes (Hospitalization)
  Sender: FDA-Public Use
  Company Number: CA-GENENTECH-297662

PATIENT
  Sex: Female
  Weight: 69 kg

DRUGS (35)
  1. RITUXIMAB [Suspect]
     Indication: DIFFUSE LARGE B-CELL LYMPHOMA
     Dosage: 660 MG, Q3W
     Route: 042
     Dates: start: 20090714
  2. RITUXIMAB [Suspect]
     Dosage: 660 MG, Q3W
     Route: 042
     Dates: start: 20090807
  3. BLINDED BEVACIZUMAB [Suspect]
     Indication: DIFFUSE LARGE B-CELL LYMPHOMA
     Dosage: UNK UNK, Q3W
     Route: 042
     Dates: start: 20090714
  4. CYCLOPHOSPHAMIDE [Suspect]
     Indication: DIFFUSE LARGE B-CELL LYMPHOMA
     Dosage: UNK UNK, Q3W
     Route: 042
     Dates: start: 20090714
  5. DOXORUBICIN HCL [Suspect]
     Indication: DIFFUSE LARGE B-CELL LYMPHOMA
     Dosage: UNK UNK, Q3W
     Route: 042
     Dates: start: 20090714
  6. BLINDED PLACEBO [Suspect]
     Indication: DIFFUSE LARGE B-CELL LYMPHOMA
     Dosage: UNK UNK, Q3W
     Route: 042
     Dates: start: 20090714
  7. BLINDED PREDNISONE [Suspect]
     Indication: DIFFUSE LARGE B-CELL LYMPHOMA
     Dosage: UNK UNK, Q3W
     Route: 042
     Dates: start: 20090714
  8. BLINDED RITUXIMAB [Suspect]
     Indication: DIFFUSE LARGE B-CELL LYMPHOMA
     Dosage: UNK UNK, Q3W
     Route: 042
     Dates: start: 20090714
  9. VINCRISTINE [Suspect]
     Indication: DIFFUSE LARGE B-CELL LYMPHOMA
     Dosage: UNK UNK, Q3W
     Route: 042
     Dates: start: 20090714
  10. BLINDED BEVACIZUMAB [Suspect]
     Dosage: UNK
     Route: 042
     Dates: start: 20090807
  11. CYCLOPHOSPHAMIDE [Suspect]
     Dosage: UNK
     Route: 042
     Dates: start: 20090807
  12. DOXORUBICIN HCL [Suspect]
     Dosage: UNK
     Route: 042
     Dates: start: 20090807
  13. BLINDED PLACEBO [Suspect]
     Dosage: UNK
     Route: 042
     Dates: start: 20090807
  14. BLINDED PREDNISONE [Suspect]
     Dosage: UNK
     Route: 042
     Dates: start: 20090807
  15. BLINDED RITUXIMAB [Suspect]
     Dosage: UNK
     Route: 042
     Dates: start: 20090807
  16. VINCRISTINE [Suspect]
     Dosage: UNK
     Route: 042
     Dates: start: 20090807
  17. CYCLOPHOSPHAMIDE [Suspect]
     Indication: DIFFUSE LARGE B-CELL LYMPHOMA
     Dosage: 1320 MG, Q3W
     Route: 042
     Dates: start: 20090714
  18. CYCLOPHOSPHAMIDE [Suspect]
     Dosage: 1320 MG, Q3W
     Route: 042
     Dates: start: 20090807
  19. PREDNISONE [Suspect]
     Indication: DIFFUSE LARGE B-CELL LYMPHOMA
     Dosage: 100 MG, D1-5
     Route: 048
     Dates: start: 20090714
  20. PREDNISONE [Suspect]
     Dosage: 100 MG, D1-5
     Route: 048
     Dates: start: 20090807
  21. VINCRISTINE [Suspect]
     Indication: DIFFUSE LARGE B-CELL LYMPHOMA
     Dosage: 2 MG, Q3W
     Route: 042
     Dates: start: 20090714
  22. VINCRISTINE [Suspect]
     Dosage: 2 MG, Q3W
     Route: 042
     Dates: start: 20090807
  23. DOXORUBICIN HCL [Suspect]
     Indication: DIFFUSE LARGE B-CELL LYMPHOMA
     Dosage: 88 MG, Q3W
     Route: 042
     Dates: start: 20090714
  24. DOXORUBICIN HCL [Suspect]
     Dosage: 88 MG, Q3W
     Route: 042
     Dates: start: 20090807
  25. PROPRANOLOL [Concomitant]
     Indication: PRODUCT USED FOR UNKNOWN INDICATION
     Dosage: UNK
     Dates: start: 20081010
  26. INDOMETHACIN [Concomitant]
     Indication: PRODUCT USED FOR UNKNOWN INDICATION
     Dosage: UNK
     Dates: start: 20070608
  27. AVAPRO [Concomitant]
     Indication: PRODUCT USED FOR UNKNOWN INDICATION
     Dosage: UNK
     Dates: start: 20090701
  28. HYDRA-ZIDE [Concomitant]
     Indication: PRODUCT USED FOR UNKNOWN INDICATION
     Dosage: UNK
     Dates: start: 20090612
  29. CRESTOR [Concomitant]
     Indication: PRODUCT USED FOR UNKNOWN INDICATION
     Dosage: UNK
     Dates: start: 20090401
  30. PREVACID [Concomitant]
     Indication: PRODUCT USED FOR UNKNOWN INDICATION
     Dosage: UNK
     Dates: start: 20090603
  31. VALACYCLOVIR [Concomitant]
     Indication: PRODUCT USED FOR UNKNOWN INDICATION
     Dosage: UNK
     Dates: start: 20090428
  32. VALACYCLOVIR [Concomitant]
     Dosage: UNK
     Dates: start: 20090828
  33. LORAZEPAM [Concomitant]
     Indication: PRODUCT USED FOR UNKNOWN INDICATION
     Dosage: UNK
     Dates: start: 20070911
  34. DULOXETINE HYDROCHLORIDE [Concomitant]
     Indication: PRODUCT USED FOR UNKNOWN INDICATION
     Dosage: UNK
     Dates: start: 20090828
  35. DULOXETINE HYDROCHLORIDE [Concomitant]
     Dosage: UNK
     Dates: start: 20090910

REACTIONS (2)
  - FEBRILE NEUTROPENIA [None]
  - RESTRICTIVE CARDIOMYOPATHY [None]
